FAERS Safety Report 23392229 (Version 2)
Quarter: 2024Q1

REPORT INFORMATION
  Report Type: Spontaneous
  Country: US (occurrence: US)
  Receive Date: 20240111
  Receipt Date: 20240322
  Transmission Date: 20240410
  Serious: Yes (Disabling, Other)
  Sender: FDA-Public Use
  Company Number: US-REGENERON PHARMACEUTICALS, INC.-2023-052216

PATIENT
  Sex: Male

DRUGS (1)
  1. EYLEA [Suspect]
     Active Substance: AFLIBERCEPT
     Indication: Vitreous floaters
     Dosage: LEFT EYE (FORMULATION: UNKNOWN)
     Dates: start: 20220324, end: 20220422

REACTIONS (5)
  - Deafness unilateral [Not Recovered/Not Resolved]
  - Cataract [Unknown]
  - Tinnitus [Recovering/Resolving]
  - Ear disorder [Unknown]
  - Off label use [Unknown]

NARRATIVE: CASE EVENT DATE: 20220101
